FAERS Safety Report 15742034 (Version 3)
Quarter: 2019Q1

REPORT INFORMATION
  Report Type: Spontaneous
  Country: US (occurrence: US)
  Receive Date: 20181219
  Receipt Date: 20190122
  Transmission Date: 20190417
  Serious: Yes (Disabling, Other)
  Sender: FDA-Public Use
  Company Number: PHEH2018US053051

PATIENT
  Age: 26 Year
  Sex: Female
  Weight: 94.79 kg

DRUGS (6)
  1. GABAPENTIN. [Suspect]
     Active Substance: GABAPENTIN
     Indication: PRODUCT USED FOR UNKNOWN INDICATION
     Dosage: 600 MG, QHS (300-600 MG AT BEDTIME)
     Route: 048
     Dates: start: 201706
  2. TYSABRI [Suspect]
     Active Substance: NATALIZUMAB
     Indication: MULTIPLE SCLEROSIS
     Dosage: 300 MG, QMO
     Route: 042
     Dates: start: 20181206
  3. COPAXONE [Suspect]
     Active Substance: GLATIRAMER ACETATE
     Indication: MULTIPLE SCLEROSIS
     Dosage: 40 MG, QD
     Route: 058
     Dates: start: 201712, end: 201805
  4. MACROBID [Suspect]
     Active Substance: NITROFURANTOIN\NITROFURANTOIN MONOHYDRATE
     Indication: URINARY TRACT INFECTION
     Dosage: 50 MG, QD
     Route: 048
     Dates: start: 20181211
  5. GILENYA [Suspect]
     Active Substance: FINGOLIMOD HYDROCHLORIDE
     Indication: MULTIPLE SCLEROSIS
     Dosage: 0.5 MG, QD
     Route: 048
     Dates: start: 20130301, end: 20170401
  6. VITAMIN D3 [Suspect]
     Active Substance: CHOLECALCIFEROL
     Indication: MULTIPLE SCLEROSIS
     Dosage: 5000 IU, QD
     Route: 048
     Dates: start: 201808

REACTIONS (9)
  - Photophobia [Unknown]
  - Hemiparesis [Unknown]
  - Hypoaesthesia [Unknown]
  - Hemiplegia [Not Recovered/Not Resolved]
  - Blindness [Unknown]
  - Nystagmus [Unknown]
  - Multiple sclerosis relapse [Not Recovered/Not Resolved]
  - Coordination abnormal [Unknown]
  - Escherichia infection [Unknown]

NARRATIVE: CASE EVENT DATE: 201706
